FAERS Safety Report 6985910-3 (Version None)
Quarter: 2010Q3

REPORT INFORMATION
  Report Type: 
  Country: None (occurrence: None)
  Receive Date: 20100827
  Receipt Date: 20100625
  Transmission Date: 20110219
  Serious: No
  Sender: FDA-Public Use
  Company Number: 014754

PATIENT
  Age: 15 Year
  Sex: Male
  Weight: 50.4 kg

DRUGS (3)
  1. LACOSAMIDE [Suspect]
     Dosage: (50 MG BID), (100 MG BID), (50 MG BID)
  2. DEPAKOTE ER [Concomitant]
  3. KEPPRA [Concomitant]

REACTIONS (1)
  - MANIA [None]
